FAERS Safety Report 9264171 (Version 1)
Quarter: 2013Q2

REPORT INFORMATION
  Report Type: Spontaneous
  Country: DE (occurrence: DE)
  Receive Date: 20130430
  Receipt Date: 20130430
  Transmission Date: 20140414
  Serious: Yes (Death)
  Sender: FDA-Public Use
  Company Number: DE-PFIZER INC-2013130622

PATIENT
  Age: 70 Year
  Sex: Male
  Weight: 70 kg

DRUGS (1)
  1. DIFLUCAN [Suspect]
     Indication: ORAL CANDIDIASIS
     Dosage: 50 MG, UNK
     Route: 048
     Dates: start: 20130314, end: 20130318

REACTIONS (2)
  - Lactic acidosis [Fatal]
  - Transaminases increased [Fatal]
